FAERS Safety Report 10671717 (Version 1)
Quarter: 2014Q4

REPORT INFORMATION
  Report Type: Spontaneous
  Country: US (occurrence: US)
  Receive Date: 20141223
  Receipt Date: 20141223
  Transmission Date: 20150529
  Serious: No
  Sender: FDA-Public Use
  Company Number: US-BAXTER-2014BAX074636

PATIENT
  Age: 50 Year
  Sex: Female

DRUGS (1)
  1. VANCOMYCIN INJECTION, USP [Suspect]
     Active Substance: VANCOMYCIN
     Indication: PROPHYLAXIS
     Route: 065
     Dates: start: 201408, end: 201408

REACTIONS (1)
  - Red man syndrome [Unknown]

NARRATIVE: CASE EVENT DATE: 201408
